FAERS Safety Report 20694059 (Version 2)
Quarter: 2024Q2

REPORT INFORMATION
  Report Type: Spontaneous
  Country: PL (occurrence: PL)
  Receive Date: 20220411
  Receipt Date: 20240518
  Transmission Date: 20240716
  Serious: Yes (Life-Threatening, Hospitalization, Other)
  Sender: FDA-Public Use
  Company Number: None

PATIENT
  Age: 29 Year
  Sex: Female

DRUGS (10)
  1. BUPROPION HYDROCHLORIDE [Interacting]
     Active Substance: BUPROPION HYDROCHLORIDE
     Indication: Prophylaxis
     Dosage: 300 MILLIGRAM, QD
     Route: 048
  2. NALTREXONE HYDROCHLORIDE [Interacting]
     Active Substance: NALTREXONE HYDROCHLORIDE
     Indication: Obesity
     Dosage: 8 MILLIGRAM, QD, 16 MG (8MG TABLET (2 TABLETS AFTER LUNCH))
     Route: 065
  3. ONDANSETRON [Interacting]
     Active Substance: ONDANSETRON
     Indication: Prophylaxis of nausea and vomiting
     Dosage: 16 MILLIGRAM, QD
     Route: 048
  4. BUPROPION HYDROCHLORIDE\NALTREXONE HYDROCHLORIDE [Interacting]
     Active Substance: BUPROPION HYDROCHLORIDE\NALTREXONE HYDROCHLORIDE
     Indication: Obesity
     Dosage: 8/90 MILLIGRAM, QD
     Route: 048
  5. SEMAGLUTIDE [Interacting]
     Active Substance: SEMAGLUTIDE
     Indication: Obesity
     Dosage: 0.5 MILLIGRAM, WEEKLY
     Route: 058
  6. VORTIOXETINE [Interacting]
     Active Substance: VORTIOXETINE
     Indication: Obesity
     Dosage: 10 MILLIGRAM, QD (TAKEN AFTER LAST MEAL)
     Route: 048
  7. ONDANSETRON [Suspect]
     Active Substance: ONDANSETRON
     Indication: Prophylaxis of nausea and vomiting
  8. BUPROPION HYDROCHLORIDE [Interacting]
     Active Substance: BUPROPION HYDROCHLORIDE
     Indication: Obesity
     Dosage: 90MG TABLET (2 TABLETS AFTER LUNCH)
  9. BUPROPION HYDROCHLORIDE\NALTREXONE HYDROCHLORIDE [Interacting]
     Active Substance: BUPROPION HYDROCHLORIDE\NALTREXONE HYDROCHLORIDE
     Indication: Product used for unknown indication
     Dosage: 2 TABLETS CONTAINING 8 MG OF NALTREXONE AND 90 MG OF BUPROPION PER DAY,?AFTER MAIN MEAL
     Route: 048
  10. BUPROPION HYDROCHLORIDE [Interacting]
     Active Substance: BUPROPION HYDROCHLORIDE
     Indication: Obesity
     Dosage: 150 MILLIGRAM, QD (THROUGH FIRST 6 DAYS)
     Route: 048

REACTIONS (19)
  - Renal failure [Recovered/Resolved]
  - Drug titration error [Unknown]
  - Myoglobinuria [Recovered/Resolved]
  - Serotonin syndrome [Recovered/Resolved]
  - Contraindicated product prescribed [Unknown]
  - Contraindicated product administered [Unknown]
  - Product prescribing error [Unknown]
  - Myopathy [Recovered/Resolved]
  - Rhabdomyolysis [Recovering/Resolving]
  - Labelled drug-drug interaction medication error [Unknown]
  - Off label use [Unknown]
  - Chills [Recovered/Resolved]
  - Hyperhidrosis [Recovered/Resolved]
  - Muscle spasms [Recovered/Resolved]
  - Headache [Recovered/Resolved]
  - Urinary retention [Recovered/Resolved]
  - Urine output decreased [Recovered/Resolved]
  - Myalgia [Recovered/Resolved]
  - Body temperature increased [Recovered/Resolved]
